FAERS Safety Report 6657588-X (Version None)
Quarter: 2010Q1

REPORT INFORMATION
  Report Type: 
  Country: None (occurrence: None)
  Receive Date: 20100330
  Receipt Date: 20100323
  Transmission Date: 20100710
  Serious: Yes (Hospitalization)
  Sender: FDA-Public Use
  Company Number: FR-SANOFI-AVENTIS-2010SA016601

PATIENT
  Age: 84 Year
  Sex: Female

DRUGS (9)
  1. LASIX [Suspect]
     Route: 048
     Dates: end: 20100215
  2. CORDARONE [Suspect]
     Dosage: 5 TIMES PER WEEK
     Route: 048
     Dates: end: 20100216
  3. KARDEGIC [Concomitant]
     Route: 048
  4. PREVISCAN [Concomitant]
     Dosage: 10 MG DAILY IN ALTERNATION WITH 5 MG DAILY
     Route: 048
  5. ATORVASTATIN CALCIUM [Concomitant]
     Route: 048
  6. KALEORID [Concomitant]
  7. PERINDOPRIL [Concomitant]
  8. LANSOPRAZOLE [Concomitant]
  9. DOLIPRANE [Concomitant]

REACTIONS (2)
  - ELECTROCARDIOGRAM QT PROLONGED [None]
  - MALAISE [None]
